FAERS Safety Report 8221669-X (Version None)
Quarter: 2012Q1

REPORT INFORMATION
  Report Type: 
  Country: None (occurrence: None)
  Receive Date: 20120320
  Receipt Date: 20120315
  Transmission Date: 20120608
  Serious: Yes (Other)
  Sender: FDA-Public Use
  Company Number: GB-ABBOTT-12P-167-0915796-00

PATIENT
  Age: 77 Year
  Sex: Male

DRUGS (1)
  1. CLARITHROMYCIN [Suspect]
     Indication: PRODUCT USED FOR UNKNOWN INDICATION
     Route: 048
     Dates: start: 20120125, end: 20120201

REACTIONS (4)
  - CHOLESTATIC LIVER INJURY [None]
  - HEPATITIS CHOLESTATIC [None]
  - CHOLECYSTITIS [None]
  - JAUNDICE [None]
